FAERS Safety Report 17631065 (Version 1)
Quarter: 2020Q2

REPORT INFORMATION
  Report Type: Spontaneous
  Country: US (occurrence: US)
  Receive Date: 20200406
  Receipt Date: 20200406
  Transmission Date: 20200713
  Serious: No
  Sender: FDA-Public Use
  Company Number: None

PATIENT
  Age: 69 Year
  Sex: Female
  Weight: 82.8 kg

DRUGS (9)
  1. BIOTIN 5 MG, ORAL [Concomitant]
  2. NEURONTIN 100MG, ORAL [Concomitant]
  3. SUTENT [Suspect]
     Active Substance: SUNITINIB MALATE
     Indication: RENAL CANCER
     Route: 048
     Dates: start: 20200318
  4. CVS MELATONIN, ORAL [Concomitant]
  5. AMLODIPINE, ORAL [Concomitant]
  6. PROZAC, 10MG, ORAL [Concomitant]
  7. SYMBICORT, 160 - 4.5 MCG, INHALER [Concomitant]
  8. PROVENTIL HFA 108 MG, INHALER [Concomitant]
  9. CYCLOBENZAPRINE 10MG, ORAL [Concomitant]

REACTIONS (1)
  - Fungal infection [None]

NARRATIVE: CASE EVENT DATE: 20200405
